FAERS Safety Report 13345630 (Version 1)
Quarter: 2017Q1

REPORT INFORMATION
  Report Type: Report from Study
  Country: FR (occurrence: FR)
  Receive Date: 20170317
  Receipt Date: 20170317
  Transmission Date: 20170428
  Serious: Yes (Hospitalization, Other)
  Sender: FDA-Public Use
  Company Number: FR-BRISTOL-MYERS SQUIBB COMPANY-BMS-2017-020819

PATIENT
  Age: 54 Year
  Sex: Male

DRUGS (3)
  1. DACLATASVIR DIHYDROCHLORIDE [Suspect]
     Active Substance: DACLATASVIR DIHYDROCHLORIDE
     Indication: HEPATITIS C VIRUS TEST
     Dosage: 60 MG, QD
     Route: 065
     Dates: start: 20141118, end: 20150505
  2. RIBAVIRIN. [Suspect]
     Active Substance: RIBAVIRIN
     Indication: HEPATITIS C VIRUS TEST
     Dosage: 200 MG, UNK
     Route: 065
     Dates: start: 20141118, end: 20150505
  3. SOVALDI [Suspect]
     Active Substance: SOFOSBUVIR
     Indication: HEPATITIS C VIRUS TEST
     Dosage: 400 MG, QD
     Route: 065
     Dates: start: 20141118, end: 20150505

REACTIONS (2)
  - Hepatocellular carcinoma [Recovered/Resolved]
  - Therapeutic embolisation [Unknown]

NARRATIVE: CASE EVENT DATE: 20141205
